FAERS Safety Report 4714415-5 (Version None)
Quarter: 2005Q3

REPORT INFORMATION
  Report Type: 
  Country: None (occurrence: None)
  Receive Date: 20050712
  Receipt Date: 20050627
  Transmission Date: 20060218
  Serious: Yes (Hospitalization)
  Sender: FDA-Public Use
  Company Number: 8010937

PATIENT
  Age: 37 Year
  Sex: Female
  Weight: 47.5 kg

DRUGS (7)
  1. KEPPRA [Suspect]
     Indication: EPILEPSY
     Dosage: 1000 MG 2/D PO
     Route: 048
     Dates: start: 20030110, end: 20030301
  2. KEPPRA [Suspect]
     Indication: EPILEPSY
     Dosage: 500 MG/D PO
     Route: 048
  3. KEPPRA [Suspect]
     Indication: EPILEPSY
     Dosage: 500 MG 2/D PO
     Route: 048
     Dates: start: 20040528, end: 20050101
  4. KEPPRA [Suspect]
     Indication: EPILEPSY
     Dosage: 1500 MG PO
     Route: 048
     Dates: start: 20050311, end: 20050514
  5. VALPROATE SODIUM [Suspect]
     Indication: EPILEPSY
     Dosage: PO
     Route: 048
     Dates: start: 20040611, end: 20040601
  6. VALPROATE SODIUM [Suspect]
     Indication: EPILEPSY
     Dosage: 400 MG 2/D PO
     Route: 048
     Dates: start: 20040630
  7. CLOBAZAM [Concomitant]

REACTIONS (1)
  - PLATELET COUNT DECREASED [None]
